FAERS Safety Report 9854550 (Version 2)
Quarter: 2014Q1

REPORT INFORMATION
  Report Type: Spontaneous
  Country: US (occurrence: US)
  Receive Date: 20140130
  Receipt Date: 20140218
  Transmission Date: 20141002
  Serious: No
  Sender: FDA-Public Use
  Company Number: US-BIOGENIDEC-2014BI007591

PATIENT
  Age: 60 Year
  Sex: Male

DRUGS (3)
  1. TECFIDERA [Suspect]
     Indication: MULTIPLE SCLEROSIS
     Route: 048
     Dates: start: 20140121
  2. VICODIN [Concomitant]
  3. MAXIMUM BLUE LABEL [Concomitant]

REACTIONS (4)
  - Abdominal distension [Unknown]
  - Dyspnoea exertional [Unknown]
  - Dizziness [Unknown]
  - Flushing [Unknown]
